FAERS Safety Report 8434829 (Version 6)
Quarter: 2013Q4

REPORT INFORMATION
  Report Type: Spontaneous
  Country: FR (occurrence: None)
  Receive Date: 20120215
  Receipt Date: 20131002
  Transmission Date: 20140711
  Serious: Yes (Life-Threatening, Other)
  Sender: FDA-Public Use
  Company Number: JPI-P-012522

PATIENT
  Age: 45 Year
  Sex: Male

DRUGS (7)
  1. XYREM [Suspect]
     Indication: CATAPLEXY
     Dosage: (2.25 GM,2 IN 1 D)
     Route: 048
     Dates: start: 200701, end: 200702
  2. XYREM [Suspect]
     Indication: SLEEP DISORDER
     Dosage: (2.25 GM,2 IN 1 D)
     Route: 048
     Dates: start: 200701, end: 200702
  3. CLOMIPRAMINE HYDROCHLORIDE [Suspect]
     Indication: CATAPLEXY
     Dosage: (25 MG, 4 IN 1 D)
     Route: 048
     Dates: end: 2007
  4. CLOMIPRAMINE HYDROCHLORIDE [Suspect]
     Indication: NARCOLEPSY
     Dosage: (25 MG, 4 IN 1 D)
     Route: 048
     Dates: end: 2007
  5. SELEGILINE [Concomitant]
  6. CLONAZEPAM [Concomitant]
  7. METHYLPHENIDATE [Concomitant]

REACTIONS (8)
  - Myocardial infarction [None]
  - Enuresis [None]
  - Urinary incontinence [None]
  - Hyperthermia [None]
  - Asthenia [None]
  - Myalgia [None]
  - Cataplexy [None]
  - Disease recurrence [None]
